FAERS Safety Report 9536149 (Version 1)
Quarter: 2013Q2

REPORT INFORMATION
  Report Type: Spontaneous
  Country: US (occurrence: None)
  Receive Date: 20130507
  Receipt Date: 20130507
  Transmission Date: 20140414
  Serious: No
  Sender: FDA-Public Use
  Company Number: PHEH2013US002375

PATIENT
  Age: 63 Year
  Sex: Female

DRUGS (4)
  1. AFINITOR (RAD) [Suspect]
     Route: 048
     Dates: start: 20130108
  2. VENTOLIN HFA (SALBUTAMOL SULFATE) [Suspect]
  3. LASIX (FUROSEMIDE) [Concomitant]
  4. COUMADINE (WARFARIN SODIUM) [Suspect]

REACTIONS (4)
  - International normalised ratio decreased [None]
  - Gingival bleeding [None]
  - Epistaxis [None]
  - Oedema peripheral [None]
